FAERS Safety Report 19965599 (Version 5)
Quarter: 2022Q1

REPORT INFORMATION
  Report Type: Spontaneous
  Country: JP (occurrence: JP)
  Receive Date: 20211018
  Receipt Date: 20220309
  Transmission Date: 20220423
  Serious: Yes (Hospitalization, Other)
  Sender: FDA-Public Use
  Company Number: JP-BRISTOL-MYERS SQUIBB COMPANY-BMS-2021-096101

PATIENT
  Age: 67 Year
  Sex: Male
  Weight: 43.5 kg

DRUGS (4)
  1. OPDIVO [Suspect]
     Active Substance: NIVOLUMAB
     Indication: Oesophageal carcinoma
     Dosage: 240 MILLIGRAM
     Route: 041
     Dates: start: 20210531, end: 20210906
  2. CORTRIL [Concomitant]
     Active Substance: HYDROCORTISONE
     Indication: Product used for unknown indication
     Route: 065
  3. MIYA-BM [Concomitant]
     Active Substance: CLOSTRIDIUM BUTYRICUM SPORES STRAIN M-55
     Indication: Product used for unknown indication
     Dosage: 20 MILLIGRAM, Q8H
     Route: 048
  4. SILODOSIN OD [Concomitant]
     Indication: Product used for unknown indication
     Dosage: 4 MILLIGRAM, QD/TABLET, ORALLY DISINTEGRATING
     Route: 048

REACTIONS (3)
  - Hyponatraemia [Recovering/Resolving]
  - Adrenocorticotropic hormone deficiency [Unknown]
  - Hypokalaemia [Unknown]

NARRATIVE: CASE EVENT DATE: 20210910
